FAERS Safety Report 5549551-7 (Version None)
Quarter: 2007Q4

REPORT INFORMATION
  Report Type: 
  Country: None (occurrence: None)
  Receive Date: 20071212
  Receipt Date: 20071203
  Transmission Date: 20080405
  Serious: Yes (Other)
  Sender: FDA-Public Use
  Company Number: PHBS2007JP11684

PATIENT
  Age: 62 Year
  Sex: Female
  Weight: 35 kg

DRUGS (4)
  1. ZOMETA [Suspect]
     Indication: METASTASES TO BONE
     Dosage: 3.2 MG, UNK
     Route: 042
     Dates: start: 20060801
  2. IRESSA [Suspect]
     Dosage: UNK, UNK
     Route: 048
     Dates: start: 20060822
  3. FAMOTIDINE [Concomitant]
     Indication: GASTRITIS
     Dates: start: 20051201
  4. OXYCONTIN [Concomitant]
     Indication: PAIN
     Dosage: 10 MG/DAY
     Route: 048
     Dates: start: 20051201

REACTIONS (2)
  - SUPRAVENTRICULAR EXTRASYSTOLES [None]
  - TACHYCARDIA PAROXYSMAL [None]
